FAERS Safety Report 6972392-0 (Version None)
Quarter: 2010Q3

REPORT INFORMATION
  Report Type: 
  Country: None (occurrence: None)
  Receive Date: 20100909
  Receipt Date: 20100827
  Transmission Date: 20110219
  Serious: Yes (Death, Other)
  Sender: FDA-Public Use
  Company Number: GB-RANBAXY-2010RR-37919

PATIENT
  Age: 2 Year
  Sex: Female

DRUGS (2)
  1. GLYCOPYRROLATE [Suspect]
     Indication: SALIVARY HYPERSECRETION
     Dosage: 0.050 MG/KG, UNK
  2. HYOSCINE [Suspect]

REACTIONS (2)
  - ASPIRATION [None]
  - VOMITING [None]
